FAERS Safety Report 9621331 (Version 2)
Quarter: 2013Q4

REPORT INFORMATION
  Report Type: Report from Study
  Country: FR (occurrence: FR)
  Receive Date: 20131015
  Receipt Date: 20131015
  Transmission Date: 20140711
  Serious: Yes (Other)
  Sender: FDA-Public Use
  Company Number: PHHY2013FR114534

PATIENT
  Age: 85 Year
  Sex: Female

DRUGS (13)
  1. ACLASTA/ZOLEDRONATE [Suspect]
     Dosage: UNK UKN, UNK
     Route: 042
     Dates: start: 201109
  2. MODURETIC [Concomitant]
     Dosage: UNK UKN, UNK
     Dates: start: 1995, end: 2013
  3. CORTISONE [Concomitant]
     Dosage: UNK UKN, UNK
     Dates: start: 2010, end: 2013
  4. VASTAREL [Concomitant]
     Dosage: UNK UKN, UNK
     Dates: end: 2013
  5. CODOLIPRANE [Concomitant]
     Dosage: UNK UKN, UNK
     Dates: start: 2011
  6. NOVATREX ^LEDERLE^ [Concomitant]
     Dosage: UNK UKN, UNK
     Dates: start: 2011, end: 2012
  7. LEDERFOLINE [Concomitant]
     Dosage: UNK UKN, UNK
     Dates: start: 2011, end: 2012
  8. SOLUPRED [Concomitant]
     Dosage: UNK UKN, UNK
     Dates: start: 2011, end: 201303
  9. TORENTAL [Concomitant]
     Dosage: UNK UKN, UNK
     Dates: start: 2012, end: 2012
  10. TANGANIL [Concomitant]
     Dosage: UNK UKN, UNK
     Dates: start: 2012, end: 2012
  11. FER [Concomitant]
     Dosage: UNK UKN, UNK
     Dates: start: 2012, end: 2013
  12. ZANIDIP [Concomitant]
     Dosage: UNK UKN, UNK
     Dates: start: 2013
  13. IMETH [Concomitant]
     Dosage: UNK UKN, UNK
     Dates: start: 2013

REACTIONS (1)
  - Humerus fracture [Unknown]
